FAERS Safety Report 8556216-6 (Version None)
Quarter: 2012Q3

REPORT INFORMATION
  Report Type: 
  Country: None (occurrence: None)
  Receive Date: 20120801
  Receipt Date: 20120724
  Transmission Date: 20120928
  Serious: Yes (Other)
  Sender: FDA-Public Use
  Company Number: US-US-EMD SERONO, INC.-7059432

PATIENT
  Sex: Male

DRUGS (2)
  1. REBIF [Suspect]
     Indication: PRODUCT USED FOR UNKNOWN INDICATION
     Route: 058
     Dates: start: 20031114
  2. BLOOD PRESSURE MEDICATIONS [Suspect]
     Indication: HYPERTENSION

REACTIONS (2)
  - ABDOMINAL HERNIA [None]
  - RENAL IMPAIRMENT [None]
